FAERS Safety Report 5585981-5 (Version None)
Quarter: 2008Q1

REPORT INFORMATION
  Report Type: 
  Country: None (occurrence: None)
  Receive Date: 20080104
  Receipt Date: 20071225
  Transmission Date: 20080703
  Serious: Yes (Other)
  Sender: FDA-Public Use
  Company Number: 18086

PATIENT
  Age: 71 Year
  Sex: Female

DRUGS (4)
  1. CARBOPLATIN [Suspect]
     Indication: OVARIAN EPITHELIAL CANCER
     Dosage: 6 AUC FREQ
  2. PACLITAXEL [Suspect]
     Indication: OVARIAN EPITHELIAL CANCER
     Dosage: 175 MG/M2
  3. DEXAMETHASONE TAB [Suspect]
     Dosage: 20 MG FREQ
  4. DEXAMETHASONE TAB [Suspect]
     Dosage: 8 MG DAILY

REACTIONS (10)
  - DIARRHOEA [None]
  - HYPOTENSION [None]
  - INTESTINAL FISTULA [None]
  - INTESTINAL PERFORATION [None]
  - MULTI-ORGAN FAILURE [None]
  - NAUSEA [None]
  - NEUTROPENIA [None]
  - SEPSIS [None]
  - TACHYCARDIA [None]
  - TUMOUR NECROSIS [None]
